FAERS Safety Report 6736518-6 (Version None)
Quarter: 2010Q2

REPORT INFORMATION
  Report Type: 
  Country: None (occurrence: None)
  Receive Date: 20100521
  Receipt Date: 20100517
  Transmission Date: 20101027
  Serious: Yes (Other)
  Sender: FDA-Public Use
  Company Number: JP-BRISTOL-MYERS SQUIBB COMPANY-15114218

PATIENT
  Age: 63 Year
  Sex: Male

DRUGS (2)
  1. IRBETAN [Suspect]
     Indication: HYPERTENSION
     Route: 048
  2. CRESTOR [Concomitant]
     Indication: HYPERLIPIDAEMIA
     Route: 048

REACTIONS (1)
  - INTERSTITIAL LUNG DISEASE [None]
